FAERS Safety Report 5771183-6 (Version None)
Quarter: 2008Q2

REPORT INFORMATION
  Report Type: 
  Country: None (occurrence: None)
  Receive Date: 20080613
  Receipt Date: 20080521
  Transmission Date: 20081010
  Serious: No
  Sender: FDA-Public Use
  Company Number: US-ABBOTT-08P-163-0454500-00

PATIENT
  Sex: Female
  Weight: 86.26 kg

DRUGS (7)
  1. HUMIRA [Suspect]
     Indication: CROHN'S DISEASE
     Route: 058
     Dates: start: 20080101, end: 20080301
  2. TOPIRAMATE [Concomitant]
     Indication: DEPRESSION
     Route: 048
  3. BUPROPION HCL [Concomitant]
     Indication: DEPRESSION
     Route: 048
  4. ESCITALOPRAM OXALATE [Concomitant]
     Indication: DEPRESSION
     Route: 048
  5. TRAZODONE HCL [Concomitant]
     Indication: INSOMNIA
     Route: 048
  6. OMEPRAZOLE [Concomitant]
     Indication: DRUG USE FOR UNKNOWN INDICATION
     Route: 048
  7. METHADONE HCL [Concomitant]
     Indication: PAIN
     Route: 048

REACTIONS (11)
  - AMNESIA [None]
  - BODY TEMPERATURE INCREASED [None]
  - CRYING [None]
  - DECREASED APPETITE [None]
  - EMOTIONAL DISORDER [None]
  - FATIGUE [None]
  - FEELING ABNORMAL [None]
  - HYPERHIDROSIS [None]
  - SLUGGISHNESS [None]
  - TEMPERATURE INTOLERANCE [None]
  - WEIGHT INCREASED [None]
